FAERS Safety Report 16515744 (Version 1)
Quarter: 2019Q3

REPORT INFORMATION
  Report Type: Spontaneous
  Country: US (occurrence: US)
  Receive Date: 20190522
  Receipt Date: 20190522
  Transmission Date: 20191004
  Serious: No
  Sender: FDA-Public Use
  Company Number: None

PATIENT
  Age: 71 Year
  Sex: Female

DRUGS (13)
  1. CYCLOBONZAPR [Concomitant]
  2. INCRUSE ELPT [Concomitant]
  3. VITAMIN B12 [Concomitant]
     Active Substance: CYANOCOBALAMIN
  4. ADVAIR HFA [Concomitant]
     Active Substance: FLUTICASONE PROPIONATE\SALMETEROL XINAFOATE
  5. VITAMIN D [Concomitant]
     Active Substance: VITAMIN D NOS
  6. ASPRIRIN [Concomitant]
  7. OMEPRAZOLO [Concomitant]
     Active Substance: OMEPRAZOLE
  8. LEVOTHYROXIN [Concomitant]
     Active Substance: LEVOTHYROXINE
  9. OCALIVA [Suspect]
     Active Substance: OBETICHOLIC ACID
     Indication: PRIMARY BILIARY CHOLANGITIS
     Route: 048
     Dates: start: 20161110
  10. AMLODIPINE [Concomitant]
     Active Substance: AMLODIPINE BESYLATE
  11. ALEVE [Concomitant]
     Active Substance: NAPROXEN SODIUM
  12. FLONASE [Concomitant]
     Active Substance: FLUTICASONE PROPIONATE
  13. LOVASTATIN. [Concomitant]
     Active Substance: LOVASTATIN

REACTIONS (1)
  - Blood alkaline phosphatase increased [None]
